FAERS Safety Report 11198397 (Version 1)
Quarter: 2015Q2

REPORT INFORMATION
  Report Type: Spontaneous
  Country: US (occurrence: None)
  Receive Date: 20150615
  Receipt Date: 20150615
  Transmission Date: 20150821
  Serious: Yes (Other)
  Sender: FDA-Public Use
  Company Number: None

PATIENT
  Age: 71 Year
  Sex: Female
  Weight: 50.8 kg

DRUGS (4)
  1. AMLODIPINE [Suspect]
     Active Substance: AMLODIPINE BESYLATE
     Indication: BLOOD PRESSURE ABNORMAL
     Route: 048
     Dates: start: 20150410, end: 20150609
  2. HYDROCHLORATHIAZIDE [Concomitant]
     Active Substance: HYDROCHLOROTHIAZIDE
  3. NITROFURANTOIN. [Concomitant]
     Active Substance: NITROFURANTOIN
  4. LISINOPRIL. [Concomitant]
     Active Substance: LISINOPRIL

REACTIONS (24)
  - Hypotension [None]
  - Asthenia [None]
  - Blood glucose increased [None]
  - Abdominal distension [None]
  - Thirst [None]
  - Joint swelling [None]
  - Eye pain [None]
  - Visual impairment [None]
  - Balance disorder [None]
  - Gait disturbance [None]
  - Formication [None]
  - Photopsia [None]
  - Dizziness [None]
  - Fatigue [None]
  - Arthralgia [None]
  - Tremor [None]
  - Ear congestion [None]
  - Pollakiuria [None]
  - Diplopia [None]
  - Hyperhidrosis [None]
  - Vision blurred [None]
  - Dyspnoea [None]
  - Weight increased [None]
  - Somnolence [None]

NARRATIVE: CASE EVENT DATE: 20150603
